FAERS Safety Report 7367060-X (Version None)
Quarter: 2011Q1

REPORT INFORMATION
  Report Type: 
  Country: None (occurrence: None)
  Receive Date: 20110310
  Receipt Date: 20110301
  Transmission Date: 20110831
  Serious: Yes (Death, Hospitalization, Other)
  Sender: FDA-Public Use
  Company Number: 2011MA001642

PATIENT
  Age: 87 Year
  Sex: Female

DRUGS (15)
  1. WARFARIN SODIUM [Suspect]
     Dosage: 3 MG
     Dates: start: 20101005, end: 20101007
  2. FUROSEMIDE [Concomitant]
  3. IBUPROFEN [Suspect]
     Dosage: 600 MG;TID
     Dates: start: 20080101, end: 20100919
  4. OMEPRAZOLE [Concomitant]
  5. LEVOTHYROXINE SODIUM [Concomitant]
  6. WARFARIN SODIUM [Suspect]
     Indication: DEEP VEIN THROMBOSIS
     Dates: start: 20100831, end: 20100919
  7. WARFARIN SODIUM [Suspect]
     Dates: start: 20100923, end: 20100929
  8. DIHYDROCODEINE BITARTRATE INJ [Concomitant]
  9. ZOPICLONE [Concomitant]
  10. MOVIPREP [Concomitant]
  11. FRAGMIN [Suspect]
     Indication: DEEP VEIN THROMBOSIS
     Dosage: 10000 IU;QD;SC
     Route: 058
     Dates: start: 20100807, end: 20100919
  12. FENTANYL [Concomitant]
  13. FRAGMIN [Suspect]
     Indication: THROMBOSIS PROPHYLAXIS
     Dosage: 5000 IU;QD
     Dates: start: 20101005
  14. TRIMETHOPRIM [Suspect]
     Indication: URINARY TRACT INFECTION
     Dosage: 200 MG;BID
     Dates: start: 20100918
  15. PARACETAMOL [Concomitant]

REACTIONS (12)
  - ANTICOAGULATION DRUG LEVEL ABOVE THERAPEUTIC [None]
  - BLOOD PRESSURE DECREASED [None]
  - DYSPHAGIA [None]
  - URINARY TRACT INFECTION [None]
  - DRUG ADMINISTRATION ERROR [None]
  - PLATELET COUNT INCREASED [None]
  - INTERNATIONAL NORMALISED RATIO INCREASED [None]
  - SOMNOLENCE [None]
  - GENERAL PHYSICAL HEALTH DETERIORATION [None]
  - INJECTION SITE HAEMORRHAGE [None]
  - SUBCUTANEOUS HAEMATOMA [None]
  - LOWER RESPIRATORY TRACT INFECTION [None]
